FAERS Safety Report 6867010-6 (Version None)
Quarter: 2010Q3

REPORT INFORMATION
  Report Type: 
  Country: None (occurrence: None)
  Receive Date: 20100722
  Receipt Date: 20100714
  Transmission Date: 20110219
  Serious: Yes (Other)
  Sender: FDA-Public Use
  Company Number: PT-ROCHE-715618

PATIENT
  Sex: Female

DRUGS (5)
  1. AVASTIN [Suspect]
     Dosage: DRUG NAME: AVASTIN CONCENTRATE FOR SOLUTION FOR INFUSION, DOSE: 25 MG/ML, FREQUENCY: PER DAY
     Route: 031
     Dates: start: 20070628, end: 20071115
  2. MIANSERIN HYDROCHLORIDE [Concomitant]
     Dosage: FREQUENCY: DAILY
  3. LISINOPRIL [Concomitant]
     Dosage: FREQUENCY: DAILY
  4. OMEPRAZOLE [Concomitant]
     Dosage: FREQUENCY: DAILY
  5. DIAZEPAM [Concomitant]
     Dosage: FREQUENCY: DAILY

REACTIONS (3)
  - EXTREMITY NECROSIS [None]
  - OFF LABEL USE [None]
  - PERIPHERAL ISCHAEMIA [None]
